FAERS Safety Report 8688118 (Version 5)
Quarter: 2014Q3

REPORT INFORMATION
  Report Type: Spontaneous
  Country: US (occurrence: US)
  Receive Date: 20120727
  Receipt Date: 20140822
  Transmission Date: 20150326
  Serious: Yes (Hospitalization, Other)
  Sender: FDA-Public Use
  Company Number: US-009507513-2012SP000189

PATIENT
  Sex: Female
  Weight: 68.4 kg

DRUGS (1)
  1. NUVARING [Suspect]
     Active Substance: ETHINYL ESTRADIOL\ETONOGESTREL
     Indication: CONTRACEPTION
     Dosage: UNK
     Route: 067
     Dates: start: 200706, end: 20090106

REACTIONS (14)
  - Nephrolithiasis [Not Recovered/Not Resolved]
  - Food poisoning [Unknown]
  - Deep vein thrombosis [Unknown]
  - Peripheral embolism [Unknown]
  - Intra-uterine contraceptive device insertion [Recovered/Resolved]
  - Nasopharyngitis [Unknown]
  - Haematuria [Not Recovered/Not Resolved]
  - Cardiac murmur functional [Unknown]
  - Pulmonary embolism [Unknown]
  - Haematochezia [Recovered/Resolved]
  - Bronchitis [Unknown]
  - Cystitis [Unknown]
  - Cystitis [Unknown]
  - Muscle strain [Unknown]

NARRATIVE: CASE EVENT DATE: 200812
